FAERS Safety Report 8814522 (Version 1)
Quarter: 2012Q4

REPORT INFORMATION
  Report Type: Spontaneous
  Country: US (occurrence: None)
  Receive Date: 20120926
  Receipt Date: 20120926
  Transmission Date: 20130627
  Serious: Yes (Other)
  Sender: FDA-Public Use
  Company Number: DSU-2012-07459

PATIENT
  Age: 79 Year
  Sex: Female
  Weight: 57.15 kg

DRUGS (2)
  1. BENICAR HCT [Suspect]
     Indication: HYPERTENSION
     Route: 048
     Dates: end: 201204
  2. COUMADIN (WARFARIN SODIUM) [Concomitant]

REACTIONS (2)
  - Hepatic cancer [None]
  - Lung neoplasm malignant [None]
